FAERS Safety Report 8554268-0 (Version None)
Quarter: 2012Q3

REPORT INFORMATION
  Report Type: 
  Country: None (occurrence: None)
  Receive Date: 20120731
  Receipt Date: 20120709
  Transmission Date: 20120928
  Serious: No
  Sender: FDA-Public Use
  Company Number: US-ASTRAZENECA-2010SE54701

PATIENT
  Age: 61 Year
  Sex: Female
  Weight: 81.6 kg

DRUGS (23)
  1. SEROQUEL [Suspect]
     Dosage: 2 TABLETS AT NIGHT
     Route: 048
     Dates: start: 20100312
  2. SEROQUEL [Suspect]
     Route: 048
     Dates: start: 20100801, end: 20110601
  3. SEROQUEL [Suspect]
     Route: 048
     Dates: start: 20100801, end: 20110601
  4. SEROQUEL [Suspect]
     Indication: OBSESSIVE-COMPULSIVE DISORDER
     Route: 048
  5. THYROID MEDICATION [Concomitant]
     Indication: THYROID DISORDER
  6. ATIVAN [Concomitant]
     Indication: OBSESSIVE-COMPULSIVE DISORDER
  7. SEROQUEL [Suspect]
     Route: 048
     Dates: start: 20100101, end: 20100801
  8. SEROQUEL [Suspect]
     Route: 048
     Dates: start: 20100101, end: 20100801
  9. SEROQUEL [Suspect]
     Route: 048
     Dates: start: 20110601
  10. SEROQUEL [Suspect]
     Route: 048
     Dates: start: 20110601
  11. LORAZEPAM [Concomitant]
     Indication: ANXIETY
  12. ESTRADIOL [Concomitant]
  13. PROGESTERONE [Concomitant]
  14. SEROQUEL [Suspect]
     Route: 048
     Dates: start: 20110601
  15. SEROQUEL [Suspect]
     Indication: DEPRESSION
     Route: 048
  16. SEROQUEL [Suspect]
     Dosage: 2 TABLETS AT NIGHT
     Route: 048
     Dates: start: 20100312
  17. TRICOR [Concomitant]
     Indication: HYPERCHOLESTEROLAEMIA
  18. SYNTHROID [Concomitant]
  19. SEROQUEL [Suspect]
     Indication: SLEEP DISORDER
     Route: 048
  20. SEROQUEL [Suspect]
     Route: 048
     Dates: start: 20100101, end: 20100801
  21. SEROQUEL [Suspect]
     Dosage: 2 TABLETS AT NIGHT
     Route: 048
     Dates: start: 20100312
  22. SEROQUEL [Suspect]
     Route: 048
     Dates: start: 20100801, end: 20110601
  23. CELEXA [Concomitant]
     Indication: OBSESSIVE-COMPULSIVE DISORDER

REACTIONS (9)
  - OFF LABEL USE [None]
  - INFLUENZA [None]
  - APATHY [None]
  - WEIGHT DECREASED [None]
  - INCORRECT DOSE ADMINISTERED [None]
  - SOMNOLENCE [None]
  - HEAD TITUBATION [None]
  - TACHYPHRENIA [None]
  - WITHDRAWAL SYNDROME [None]
